FAERS Safety Report 5924310-1 (Version None)
Quarter: 2008Q4

REPORT INFORMATION
  Report Type: 
  Country: None (occurrence: None)
  Receive Date: 20081015
  Receipt Date: 20081001
  Transmission Date: 20090506
  Serious: Yes (Other)
  Sender: FDA-Public Use
  Company Number: GXKR2008GB09443

PATIENT
  Age: 50 Year
  Sex: Male

DRUGS (11)
  1. DIHYDROCODEINE (NGX) (DIHYDROCODEINE) UNKNOWN [Suspect]
  2. FLUOXETINE [Suspect]
     Dosage: 40 MG
  3. OXYCONTIN [Suspect]
     Indication: PAIN
     Dosage: 80MG   80 MG, BID
     Dates: start: 20061201
  4. OXYCODONE HYDROCHLORIDE [Suspect]
     Indication: PAIN
     Dosage: 5  PRN
     Dates: start: 20061201
  5. CALCICHEW (CALCIUM CARBONATE) [Concomitant]
  6. ETORICOXIB (ETORICOXIB) [Concomitant]
  7. IBANDRONIC ACID (IBANDRONIC ACID) [Concomitant]
  8. ISPAGHULA (ISPAGHULA, PLANTAGO OVATA) [Concomitant]
  9. OMEPRAZOLE [Concomitant]
  10. PREDNISOLONE [Concomitant]
  11. SENNA (SENNA, SENNA ALEXANDRINA) [Concomitant]

REACTIONS (5)
  - CONSTIPATION [None]
  - DRUG DEPENDENCE [None]
  - DRUG INEFFECTIVE [None]
  - DRUG INTERACTION [None]
  - HYPERHIDROSIS [None]
